FAERS Safety Report 7093055-X (Version None)
Quarter: 2010Q4

REPORT INFORMATION
  Report Type: 
  Country: None (occurrence: None)
  Receive Date: 20101110
  Receipt Date: 20101102
  Transmission Date: 20110411
  Serious: Yes (Hospitalization)
  Sender: FDA-Public Use
  Company Number: US-ELI_LILLY_AND_COMPANY-US201008007292

PATIENT
  Sex: Female
  Weight: 126.8 kg

DRUGS (14)
  1. BYETTA [Suspect]
     Indication: TYPE 2 DIABETES MELLITUS
     Dosage: 5 UG, 2/D
     Route: 058
     Dates: start: 20060501, end: 20060604
  2. BYETTA [Suspect]
     Dosage: 10 UG, 2/D
     Route: 058
     Dates: start: 20060604, end: 20100816
  3. PROZAC [Concomitant]
     Indication: DEPRESSION
     Dosage: 40 MG, DAILY (1/D)
  4. METFORMIN [Concomitant]
     Indication: TYPE 2 DIABETES MELLITUS
     Dosage: 1000 MG, 2/D
  5. JANUVIA [Concomitant]
     Indication: TYPE 2 DIABETES MELLITUS
     Dosage: 100 MG, EACH MORNING
  6. KLONOPIN [Concomitant]
     Indication: ANXIETY
     Dosage: 0.5 MG, AS NEEDED
  7. SIMVASTATIN [Concomitant]
     Indication: BLOOD CHOLESTEROL INCREASED
     Dosage: 40 MG, EACH EVENING
  8. SINGULAIR [Concomitant]
     Indication: HYPERSENSITIVITY
     Dosage: UNK, DAILY (1/D)
  9. LORATADINE [Concomitant]
     Indication: HYPERSENSITIVITY
     Dosage: 10 MG, AS NEEDED
  10. MICARDIS HCT [Concomitant]
     Indication: HYPERTENSION
     Dosage: 40 MG, EACH MORNING
  11. SYNTHROID [Concomitant]
     Dosage: 0.025 MG, EACH MORNING
  12. SINEMET [Concomitant]
     Indication: RESTLESS LEGS SYNDROME
     Dosage: UNK, DAILY (1/D)
     Route: 048
  13. MOBIC [Concomitant]
     Indication: JOINT SWELLING
     Dosage: 15 MG, UNK
  14. TRICOR [Concomitant]
     Indication: BLOOD TRIGLYCERIDES INCREASED
     Dosage: 145 MG, EACH MORNING

REACTIONS (7)
  - ANXIETY [None]
  - BLOOD GLUCOSE INCREASED [None]
  - DEPRESSION [None]
  - GLYCOSYLATED HAEMOGLOBIN INCREASED [None]
  - PARANOIA [None]
  - SLEEP APNOEA SYNDROME [None]
  - WEIGHT INCREASED [None]
